FAERS Safety Report 5508692-0 (Version None)
Quarter: 2007Q4

REPORT INFORMATION
  Report Type: 
  Country: None (occurrence: None)
  Receive Date: 20071107
  Receipt Date: 20071101
  Transmission Date: 20080405
  Serious: Yes (Hospitalization, Other)
  Sender: FDA-Public Use
  Company Number: PHNR2006AU00474

PATIENT
  Age: 53 Year
  Sex: Female

DRUGS (7)
  1. LAMISIL [Suspect]
     Indication: NAIL INFECTION
     Dosage: 250MG DAILY
     Route: 048
     Dates: start: 20051030, end: 20051201
  2. HARMONY WOMENA??S PRE-MENSTRUAL [Concomitant]
  3. INNER HEALTH PLUS DAIRY FREE [Concomitant]
  4. LAXATIVES [Concomitant]
  5. SENNA [Concomitant]
  6. VITAMIN CAP [Concomitant]
  7. FISH OIL [Concomitant]

REACTIONS (10)
  - BLISTER [None]
  - COITAL BLEEDING [None]
  - CUTANEOUS LUPUS ERYTHEMATOSUS [None]
  - DERMATITIS BULLOUS [None]
  - GENITAL HAEMORRHAGE [None]
  - HAEMORRHAGE [None]
  - LUPUS-LIKE SYNDROME [None]
  - PHOTOSENSITIVITY REACTION [None]
  - RASH GENERALISED [None]
  - VAGINAL HAEMORRHAGE [None]
